FAERS Safety Report 9768224 (Version 2)
Quarter: 2014Q1

REPORT INFORMATION
  Report Type: Spontaneous
  Country: CA (occurrence: CA)
  Receive Date: 20131217
  Receipt Date: 20140221
  Transmission Date: 20141002
  Serious: Yes (Hospitalization)
  Sender: FDA-Public Use
  Company Number: CA-TEVA-451375USA

PATIENT
  Age: 60 Year
  Sex: Male

DRUGS (4)
  1. TREANDA [Suspect]
     Indication: CHRONIC LYMPHOCYTIC LEUKAEMIA
     Dosage: CYCLE 1
     Route: 042
     Dates: start: 20131204, end: 20131205
  2. ACYCLOVIR [Concomitant]
     Dosage: 800 MILLIGRAM DAILY;
     Route: 048
  3. AMLODIPINE [Concomitant]
     Dosage: 5 MILLIGRAM DAILY;
     Route: 048
  4. DEXAMETHASONE [Concomitant]
     Dosage: 10 MILLIGRAM DAILY;
     Route: 048
     Dates: start: 201312

REACTIONS (3)
  - Gait disturbance [Recovered/Resolved]
  - Pyrexia [Recovered/Resolved]
  - Fatigue [Recovered/Resolved]
